FAERS Safety Report 9442160 (Version 1)
Quarter: 2013Q3

REPORT INFORMATION
  Report Type: Spontaneous
  Country: US (occurrence: None)
  Receive Date: 20130805
  Receipt Date: 20130805
  Transmission Date: 20140515
  Serious: Yes (Hospitalization)
  Sender: FDA-Public Use
  Company Number: None

PATIENT
  Age: 66 Year
  Sex: Male
  Weight: 57.8 kg

DRUGS (1)
  1. HYDROCHLOROTHIAZIDE [Suspect]
     Indication: HYPERTENSION
     Dosage: 25 MG  EVERY DAY PO
     Route: 048
     Dates: start: 20121218, end: 20130731

REACTIONS (4)
  - Skin ulcer [None]
  - Mental status changes [None]
  - Hyponatraemia [None]
  - Inappropriate antidiuretic hormone secretion [None]
